FAERS Safety Report 5923911-4 (Version None)
Quarter: 2008Q4

REPORT INFORMATION
  Report Type: 
  Country: None (occurrence: None)
  Receive Date: 20081020
  Receipt Date: 20081007
  Transmission Date: 20090506
  Serious: Yes (Hospitalization, Other)
  Sender: FDA-Public Use
  Company Number: JP-ROCHE-577893

PATIENT
  Sex: Male

DRUGS (24)
  1. DENOSINE IV [Suspect]
     Indication: DRUG USE FOR UNKNOWN INDICATION
     Route: 041
     Dates: start: 20060905, end: 20060912
  2. DENOSINE IV [Suspect]
     Route: 041
     Dates: start: 20060925, end: 20061003
  3. BACTRIM [Suspect]
     Indication: PNEUMOCYSTIS JIROVECI PNEUMONIA
     Route: 048
     Dates: start: 20060904
  4. BACTRIM [Suspect]
     Dosage: DOSE INCREASE
     Route: 048
  5. CELLCEPT [Suspect]
     Route: 065
     Dates: start: 20060501, end: 20060901
  6. CELLCEPT [Suspect]
     Dosage: DOSAGE REDUCED
     Route: 065
     Dates: start: 20060901, end: 20060905
  7. TACROLIMUS [Suspect]
     Dosage: TREATMENT SWITCHED TO CICLOSPORIN
     Route: 065
  8. METHYLPREDNISOLONE 16MG TAB [Suspect]
     Route: 065
  9. BASILIXIMAB [Suspect]
     Route: 065
  10. CYCLOSPORINE [Suspect]
     Route: 065
     Dates: end: 20060901
  11. CYCLOSPORINE [Suspect]
     Dosage: DOSAGE REDUCED
     Route: 065
     Dates: start: 20060901
  12. LEVOFLOXACIN [Suspect]
     Route: 048
     Dates: start: 20060903
  13. MEDROL [Concomitant]
     Indication: DRUG USE FOR UNKNOWN INDICATION
     Dates: start: 20060501, end: 20060906
  14. CRAVIT [Concomitant]
     Indication: DRUG USE FOR UNKNOWN INDICATION
     Dates: start: 20060903, end: 20060903
  15. FUNGUARD [Concomitant]
     Indication: DRUG USE FOR UNKNOWN INDICATION
     Dates: start: 20060905, end: 20060910
  16. MINOCYCLINE HYDROCHLORIDE [Concomitant]
     Indication: DRUG USE FOR UNKNOWN INDICATION
     Dates: start: 20060906, end: 20060906
  17. METHYLPREDNISOLONE SODIUM SUCCINATE [Concomitant]
     Indication: DRUG USE FOR UNKNOWN INDICATION
     Dates: start: 20060906, end: 20060909
  18. CEFTAZIDIME [Concomitant]
     Indication: DRUG USE FOR UNKNOWN INDICATION
     Dates: start: 20060907
  19. CIPROFLOXACIN HCL [Concomitant]
     Indication: DRUG USE FOR UNKNOWN INDICATION
     Dates: start: 20060909
  20. ZITHROMAX [Concomitant]
     Indication: DRUG USE FOR UNKNOWN INDICATION
     Dates: start: 20060909, end: 20060910
  21. SULBACTAM SODIUM [Concomitant]
     Indication: DRUG USE FOR UNKNOWN INDICATION
     Dates: start: 20060919, end: 20060921
  22. TIENAM [Concomitant]
     Indication: DRUG USE FOR UNKNOWN INDICATION
  23. VANCOMYCIN [Concomitant]
     Indication: DRUG USE FOR UNKNOWN INDICATION
     Dates: start: 20080925, end: 20080928
  24. VFEND [Concomitant]
     Indication: DRUG USE FOR UNKNOWN INDICATION

REACTIONS (6)
  - BONE MARROW FAILURE [None]
  - CYTOMEGALOVIRUS INFECTION [None]
  - NEPHROPATHY TOXIC [None]
  - PNEUMOCYSTIS JIROVECI PNEUMONIA [None]
  - POLYOMAVIRUS-ASSOCIATED NEPHROPATHY [None]
  - PULMONARY ALVEOLAR HAEMORRHAGE [None]
